FAERS Safety Report 23787789 (Version 10)
Quarter: 2024Q4

REPORT INFORMATION
  Report Type: Spontaneous
  Country: GB (occurrence: GB)
  Receive Date: 20240426
  Receipt Date: 20241024
  Transmission Date: 20250114
  Serious: Yes (Hospitalization)
  Sender: CSL BEHRING
  Company Number: GB-BEH-2024171323

PATIENT
  Age: 64 Year
  Sex: Female
  Weight: 86 kg

DRUGS (17)
  1. HIZENTRA [Suspect]
     Active Substance: HUMAN IMMUNOGLOBULIN G
     Indication: Sjogren^s syndrome
     Dosage: 14 G, QW(2G/10ML 20%)
     Route: 058
  2. HIZENTRA [Suspect]
     Active Substance: HUMAN IMMUNOGLOBULIN G
     Indication: Immunology test
     Dosage: 4 G, (4G/20ML 20%)
     Route: 058
  3. NITROGLYCERIN [Concomitant]
     Active Substance: NITROGLYCERIN
     Dosage: 2 DF, PRN
  4. FENTANYL [Concomitant]
     Active Substance: FENTANYL
     Dosage: 1 DF EVERY 72 HOURS
  5. PREGABALIN [Concomitant]
     Active Substance: PREGABALIN
     Dosage: 1 DF, IN THE MORNING
  6. PREGABALIN [Concomitant]
     Active Substance: PREGABALIN
     Dosage: 1 DF, QD IN THE EVENING
  7. ASPIRIN [Concomitant]
     Active Substance: ASPIRIN
     Dosage: 1 DF, QD
  8. ATORVASTATIN [Concomitant]
     Active Substance: ATORVASTATIN
     Dosage: 1 DF, QD
  9. CALCEOS [Concomitant]
     Active Substance: CALCIUM CARBONATE\CHOLECALCIFEROL
     Dosage: 2 DF, QD IN THE MORNING
  10. COTRIMOXAZOLE [Concomitant]
     Active Substance: SULFAMETHOXAZOLE\TRIMETHOPRIM
     Dosage: 1 DF, QD
  11. HYDROXYCHLOROQUINE [Concomitant]
     Active Substance: HYDROXYCHLOROQUINE
     Dosage: 1 DF, QD
  12. OMEPRAZOLE [Concomitant]
     Active Substance: OMEPRAZOLE
     Dosage: 1 DF, BID
  13. PREDNISOLONE [Concomitant]
     Active Substance: PREDNISOLONE
     Dosage: 1 DF, QD
  14. PREDNISOLONE [Concomitant]
     Active Substance: PREDNISOLONE
     Dosage: 1 DF, QD
  15. NITROFURANTOIN [Concomitant]
     Active Substance: NITROFURANTOIN
     Dosage: 1 DF, QD AT NIGHT
  16. FERINJECT [Concomitant]
     Active Substance: FERRIC CARBOXYMALTOSE
     Dosage: 1000 MG, TOT
  17. MORPHINE SULFATE [Concomitant]
     Active Substance: MORPHINE SULFATE
     Indication: Pain
     Dosage: 5 MG, Q4H
     Route: 048

REACTIONS (10)
  - Patella fracture [Recovering/Resolving]
  - Fall [Recovering/Resolving]
  - Chest pain [Unknown]
  - Off label use [Unknown]
  - Osteoarthritis [Unknown]
  - Diarrhoea [Recovered/Resolved]
  - Treatment delayed [Unknown]
  - Chondrocalcinosis [Unknown]
  - Osteoarthritis [Unknown]
  - Product dose omission issue [Unknown]

NARRATIVE: CASE EVENT DATE: 20240320
